FAERS Safety Report 9046605 (Version 1)
Quarter: 2013Q1

REPORT INFORMATION
  Report Type: Spontaneous
  Country: US (occurrence: None)
  Receive Date: 20130125
  Receipt Date: 20130125
  Transmission Date: 20140127
  Serious: Yes (Other)
  Sender: FDA-Public Use
  Company Number: None

PATIENT
  Age: 39 Year
  Sex: Female
  Weight: 56.7 kg

DRUGS (3)
  1. WELLBUTRIN XL 150MG BIOVAIL [Suspect]
     Indication: ANXIETY
  2. WELLBUTRIN XL 150MG BIOVAIL [Suspect]
     Indication: DEPRESSION
  3. WELLBUTRIN XL 150MG BIOVAIL [Suspect]
     Indication: PREMENSTRUAL SYNDROME

REACTIONS (6)
  - Product substitution issue [None]
  - Drug ineffective [None]
  - Depressed mood [None]
  - Anger [None]
  - Insomnia [None]
  - Decreased appetite [None]
